FAERS Safety Report 17579606 (Version 1)
Quarter: 2020Q1

REPORT INFORMATION
  Report Type: Spontaneous
  Country: CA (occurrence: CA)
  Receive Date: 20200325
  Receipt Date: 20200325
  Transmission Date: 20200409
  Serious: Yes (Other)
  Sender: FDA-Public Use
  Company Number: NVSC2020CA081503

PATIENT
  Age: 72 Year
  Sex: Female

DRUGS (4)
  1. CALCIUM [Concomitant]
     Active Substance: CALCIUM
     Indication: PRODUCT USED FOR UNKNOWN INDICATION
     Dosage: UNK
     Route: 065
  2. ACLASTA [Suspect]
     Active Substance: ZOLEDRONIC ACID
     Route: 042
  3. VENLAFAXINE HYDROCHLORIDE. [Concomitant]
     Active Substance: VENLAFAXINE HYDROCHLORIDE
     Indication: PRODUCT USED FOR UNKNOWN INDICATION
     Route: 065
  4. CALCIUM CARBONATE. [Suspect]
     Active Substance: CALCIUM CARBONATE
     Indication: PRODUCT USED FOR UNKNOWN INDICATION
     Dosage: UNK
     Route: 065

REACTIONS (19)
  - Loss of consciousness [Unknown]
  - Face oedema [Unknown]
  - Mastication disorder [Unknown]
  - Dyspepsia [Unknown]
  - Eye contusion [Unknown]
  - Vomiting [Unknown]
  - Swelling [Unknown]
  - Abdominal discomfort [Unknown]
  - Eye pain [Unknown]
  - Feeling abnormal [Unknown]
  - Loose tooth [Unknown]
  - Skin injury [Unknown]
  - Malaise [Unknown]
  - Pain in jaw [Unknown]
  - Rash macular [Unknown]
  - Skin haemorrhage [Unknown]
  - Arterial occlusive disease [Unknown]
  - Head injury [Unknown]
  - Headache [Unknown]
